FAERS Safety Report 8024030-6 (Version None)
Quarter: 2012Q1

REPORT INFORMATION
  Report Type: 
  Country: None (occurrence: None)
  Receive Date: 20120105
  Receipt Date: 20111227
  Transmission Date: 20120608
  Serious: Yes (Hospitalization, Other)
  Sender: FDA-Public Use
  Company Number: NZ-COVIDIEN/TYCO HEALTHCARE/MALLINCKRODT-T201102934

PATIENT
  Age: 39 Year
  Sex: Female

DRUGS (5)
  1. CEFTRIAXONE [Suspect]
  2. VANCOMYCIN [Suspect]
  3. TRAMADOL HCL [Suspect]
  4. GENTAMYCIN SULFATE [Suspect]
  5. NEFOPAM [Suspect]

REACTIONS (4)
  - BASEDOW'S DISEASE [None]
  - ARTHRALGIA [None]
  - DRUG RASH WITH EOSINOPHILIA AND SYSTEMIC SYMPTOMS [None]
  - HUMAN HERPESVIRUS 6 INFECTION [None]
